FAERS Safety Report 5282803-7 (Version None)
Quarter: 2007Q2

REPORT INFORMATION
  Report Type: 
  Country: None (occurrence: None)
  Receive Date: 20070402
  Receipt Date: 20070322
  Transmission Date: 20071010
  Serious: Yes (Other)
  Sender: FDA-Public Use
  Company Number: ES-JNJFOC-20070305645

PATIENT
  Sex: Male
  Weight: 46 kg

DRUGS (3)
  1. RISPERDAL [Suspect]
     Indication: ABNORMAL BEHAVIOUR
     Dosage: 1.5-0-0.5
     Route: 048
  2. TOPAMAX [Suspect]
     Route: 048
  3. TOPAMAX [Suspect]
     Indication: IMPULSIVE BEHAVIOUR
     Route: 048

REACTIONS (4)
  - COORDINATION ABNORMAL [None]
  - DYSKINESIA [None]
  - HYPOAESTHESIA [None]
  - PERIPHERAL COLDNESS [None]
